FAERS Safety Report 8223609-6 (Version None)
Quarter: 2012Q1

REPORT INFORMATION
  Report Type: 
  Country: None (occurrence: None)
  Receive Date: 20120321
  Receipt Date: 20120314
  Transmission Date: 20120608
  Serious: Yes (Other)
  Sender: FDA-Public Use
  Company Number: US-BAYER-2011-052073

PATIENT
  Age: 43 Year
  Sex: Female
  Weight: 58.957 kg

DRUGS (5)
  1. DILAUDID [Concomitant]
     Indication: PAIN
     Dosage: UNK UNK, PRN
     Route: 048
  2. VICODIN [Concomitant]
     Indication: PAIN
     Route: 048
  3. YAZ [Suspect]
     Dosage: UNK
     Dates: start: 20080301, end: 20100101
  4. WELLBUTRIN [Concomitant]
     Indication: ANXIETY
     Dosage: DAILY DOSE 200 MG
     Route: 048
  5. XANAX [Concomitant]
     Indication: ANXIETY
     Dosage: 1 MG, BID
     Route: 048

REACTIONS (13)
  - EMOTIONAL DISORDER [None]
  - CONSTIPATION [None]
  - DEPRESSION [None]
  - CHOLECYSTITIS [None]
  - SCAR [None]
  - PAIN [None]
  - DYSPEPSIA [None]
  - DIARRHOEA [None]
  - ABDOMINAL DISTENSION [None]
  - CHOLECYSTECTOMY [None]
  - INJURY [None]
  - FLATULENCE [None]
  - ANXIETY [None]
